FAERS Safety Report 25063691 (Version 1)
Quarter: 2025Q1

REPORT INFORMATION
  Report Type: Spontaneous
  Country: PL (occurrence: PL)
  Receive Date: 20250311
  Receipt Date: 20250311
  Transmission Date: 20250408
  Serious: Yes (Other)
  Sender: PFIZER
  Company Number: PL-SERVIER-S25001808

PATIENT
  Age: 72 Year
  Sex: Female

DRUGS (4)
  1. CONTROLOC [Suspect]
     Active Substance: PANTOPRAZOLE SODIUM
     Indication: Gastrooesophageal reflux disease
     Dosage: 20 MG, 1X/DAY
     Route: 048
     Dates: end: 20240527
  2. TIBSOVO [Suspect]
     Active Substance: IVOSIDENIB
     Indication: Cholangiocarcinoma
     Dosage: 500 MILLIGRAM, QD
     Route: 048
     Dates: start: 20240513, end: 20240527
  3. TIBSOVO [Suspect]
     Active Substance: IVOSIDENIB
     Dosage: 500 MILLIGRAM, QD
     Route: 048
     Dates: start: 20240606, end: 20241220
  4. BISOPROLOL FUMARATE [Concomitant]
     Active Substance: BISOPROLOL FUMARATE
     Indication: Hypertension
     Dosage: 1.25 MG, 1X/DAY
     Route: 048
     Dates: end: 20240527

REACTIONS (6)
  - Electrocardiogram QT prolonged [Recovered/Resolved]
  - Disease progression [Unknown]
  - Ascites [Recovered/Resolved]
  - Gastric ulcer [Recovered/Resolved]
  - Oedema peripheral [Recovered/Resolved]
  - Dyspepsia [Recovered/Resolved]

NARRATIVE: CASE EVENT DATE: 20240101
